FAERS Safety Report 20458132 (Version 1)
Quarter: 2022Q1

REPORT INFORMATION
  Report Type: Spontaneous
  Country: JP (occurrence: JP)
  Receive Date: 20220211
  Receipt Date: 20220211
  Transmission Date: 20220423
  Serious: Yes (Death, Hospitalization, Other)
  Sender: FDA-Public Use
  Company Number: JP-SUN PHARMACEUTICAL INDUSTRIES LTD-2022RR-326311

PATIENT
  Age: 69 Year
  Sex: Female

DRUGS (2)
  1. RILUZOLE [Suspect]
     Active Substance: RILUZOLE
     Indication: Amyotrophic lateral sclerosis
     Dosage: UNK
     Route: 065
  2. CEFTRIAXONE [Suspect]
     Active Substance: CEFTRIAXONE
     Indication: Klebsiella infection
     Dosage: UNK
     Route: 065

REACTIONS (15)
  - Systemic inflammatory response syndrome [Fatal]
  - Transaminases increased [Unknown]
  - Anorexia and bulimia syndrome [Unknown]
  - Back pain [Unknown]
  - Dysarthria [Unknown]
  - Fall [Unknown]
  - Fatigue [Unknown]
  - Tachypnoea [Unknown]
  - Muscular weakness [Unknown]
  - Dysphonia [Unknown]
  - Pain [Unknown]
  - Refusal of treatment by relative [Unknown]
  - Drug ineffective [Unknown]
  - Pyrexia [Unknown]
  - Altered state of consciousness [Unknown]
